FAERS Safety Report 10380966 (Version 2)
Quarter: 2014Q3

REPORT INFORMATION
  Report Type: Spontaneous
  Country: CH (occurrence: CH)
  Receive Date: 20140813
  Receipt Date: 20140813
  Transmission Date: 20150326
  Serious: Yes (Hospitalization)
  Sender: FDA-Public Use
  Company Number: CH-SA-2014SA095317

PATIENT
  Age: 64 Year
  Sex: Male

DRUGS (13)
  1. ENALAPRIL [Suspect]
     Active Substance: ENALAPRIL
     Indication: CARDIAC FAILURE
     Dosage: HIGH DOSE
     Route: 065
     Dates: start: 19861104, end: 19861104
  2. ENALAPRIL [Suspect]
     Active Substance: ENALAPRIL
     Indication: CARDIAC FAILURE
     Dosage: HIGH DOSE
     Route: 065
     Dates: start: 19861105, end: 19861105
  3. ENALAPRIL [Suspect]
     Active Substance: ENALAPRIL
     Indication: CARDIAC FAILURE
     Route: 065
     Dates: start: 19861106, end: 19861106
  4. IMIPRAMINE [Concomitant]
     Active Substance: IMIPRAMINE
     Dates: start: 198611
  5. LASIX [Suspect]
     Active Substance: FUROSEMIDE
     Indication: POLYURIA
     Route: 065
     Dates: start: 198611, end: 198611
  6. METOLAZONE. [Suspect]
     Active Substance: METOLAZONE
     Indication: POLYURIA
     Route: 065
     Dates: start: 198611, end: 19861106
  7. DIGOXIN. [Concomitant]
     Active Substance: DIGOXIN
     Dates: start: 198611
  8. PREDNISONE. [Concomitant]
     Active Substance: PREDNISONE
     Dates: start: 198611
  9. LASIX [Suspect]
     Active Substance: FUROSEMIDE
     Indication: POLYURIA
     Route: 065
     Dates: start: 198611, end: 19861106
  10. PHENPROCOUMON [Concomitant]
     Active Substance: PHENPROCOUMON
     Indication: ANTICOAGULANT THERAPY
     Dates: start: 198611
  11. LASIX [Suspect]
     Active Substance: FUROSEMIDE
     Indication: POLYURIA
     Route: 065
     Dates: start: 198611, end: 198611
  12. SOLDACTONE [Suspect]
     Active Substance: CANRENOATE POTASSIUM
     Indication: POLYURIA
     Route: 065
     Dates: start: 198611, end: 19861106
  13. ISOSORBIDE DINITRATE. [Concomitant]
     Active Substance: ISOSORBIDE DINITRATE
     Dates: start: 198611

REACTIONS (6)
  - Blood urea increased [Recovered/Resolved]
  - Blood creatinine increased [Recovered/Resolved]
  - Hypovolaemia [Recovered/Resolved]
  - Anuria [Recovered/Resolved]
  - Hypotension [Recovered/Resolved]
  - Renal failure [Recovered/Resolved]

NARRATIVE: CASE EVENT DATE: 198611
